FAERS Safety Report 17036227 (Version 1)
Quarter: 2019Q4

REPORT INFORMATION
  Report Type: Spontaneous
  Country: US (occurrence: US)
  Receive Date: 20191016
  Receipt Date: 20191016
  Transmission Date: 20200122
  Serious: Yes (Other)
  Sender: FDA-Public Use
  Company Number: None

PATIENT
  Age: 5 Year
  Sex: Male
  Weight: 16.4 kg

DRUGS (1)
  1. CONCERTA [Suspect]
     Active Substance: METHYLPHENIDATE HYDROCHLORIDE
     Indication: ATTENTION DEFICIT/HYPERACTIVITY DISORDER
     Dates: start: 20190925, end: 20191001

REACTIONS (6)
  - Product substitution issue [None]
  - Headache [None]
  - Insomnia [None]
  - Hallucination, visual [None]
  - Eye pain [None]
  - Photopsia [None]

NARRATIVE: CASE EVENT DATE: 20190928
